FAERS Safety Report 4603141-9 (Version None)
Quarter: 2005Q1

REPORT INFORMATION
  Report Type: 
  Country: None (occurrence: None)
  Receive Date: 20050309
  Receipt Date: 20050215
  Transmission Date: 20050727
  Serious: Yes (Other)
  Sender: FDA-Public Use
  Company Number: PHBS2005CA02501

PATIENT
  Age: 36 Year
  Sex: Female

DRUGS (5)
  1. ZELNORM [Suspect]
     Indication: IRRITABLE BOWEL SYNDROME
     Dosage: 6 MG, BID
     Route: 048
     Dates: start: 20050210, end: 20050215
  2. ETHINYL ESTRADIOL TAB [Concomitant]
  3. FAMOTIDINE [Concomitant]
  4. ALLEGRA [Concomitant]
  5. NORETHINDRONE ACETATE [Concomitant]

REACTIONS (3)
  - BURNING SENSATION [None]
  - FACE OEDEMA [None]
  - FLUSHING [None]
